FAERS Safety Report 5245916-1 (Version None)
Quarter: 2007Q1

REPORT INFORMATION
  Report Type: 
  Country: None (occurrence: None)
  Receive Date: 20070216
  Receipt Date: 20070201
  Transmission Date: 20070707
  Serious: Yes (Death)
  Sender: FDA-Public Use
  Company Number: 8021843

PATIENT
  Age: 80 Year
  Sex: Female

DRUGS (3)
  1. KEPPRA [Suspect]
     Indication: STATUS EPILEPTICUS
     Dosage: NI IV
     Route: 042
  2. BENZODIAZEPINES [Concomitant]
  3. ANTICONVULSIVE DRUGS [Concomitant]

REACTIONS (1)
  - LOSS OF CONSCIOUSNESS [None]
